FAERS Safety Report 5509268-1 (Version None)
Quarter: 2007Q4

REPORT INFORMATION
  Report Type: 
  Country: None (occurrence: None)
  Receive Date: 20071107
  Receipt Date: 20071106
  Transmission Date: 20080405
  Serious: No
  Sender: FDA-Public Use
  Company Number: US-BOEHRINGER INGELHEIM PHARMACEUTICALS, INC.-2007-BP-22097BP

PATIENT

DRUGS (1)
  1. MICARDIS [Suspect]
     Dates: start: 20060101, end: 20070101

REACTIONS (3)
  - MUSCLE TWITCHING [None]
  - MYALGIA [None]
  - PAIN IN EXTREMITY [None]
